APPROVED DRUG PRODUCT: AMINOSYN II 3.5% IN DEXTROSE 5% IN PLASTIC CONTAINER
Active Ingredient: AMINO ACIDS; DEXTROSE
Strength: 3.5%;5GM/100ML
Dosage Form/Route: INJECTABLE;INJECTION
Application: N019506 | Product #001
Applicant: ABBOTT LABORATORIES PHARMACEUTICAL PRODUCTS DIV
Approved: Nov 7, 1986 | RLD: No | RS: No | Type: DISCN